FAERS Safety Report 6235121-4 (Version None)
Quarter: 2009Q2

REPORT INFORMATION
  Report Type: 
  Country: None (occurrence: None)
  Receive Date: 20090618
  Receipt Date: 20090608
  Transmission Date: 20091009
  Serious: Yes (Hospitalization)
  Sender: FDA-Public Use
  Company Number: US-ELI_LILLY_AND_COMPANY-US200906002118

PATIENT
  Age: 75 Year
  Sex: Female

DRUGS (9)
  1. GEMZAR [Suspect]
     Indication: PANCREATIC CARCINOMA
     Dosage: 1.7 G, OTHER
     Dates: start: 20090519, end: 20090101
  2. GEMZAR [Suspect]
     Dosage: 1.5 G, OTHER
     Dates: start: 20090526
  3. AMARYL [Concomitant]
  4. NORVASC [Concomitant]
  5. IMDUR [Concomitant]
  6. ZOCOR [Concomitant]
     Dates: end: 20090101
  7. LISINOPRIL [Concomitant]
  8. LASIX [Concomitant]
  9. OMEPRAZOLE [Concomitant]

REACTIONS (3)
  - ASTHENIA [None]
  - MYOSITIS [None]
  - RHABDOMYOLYSIS [None]
